FAERS Safety Report 13419800 (Version 1)
Quarter: 2017Q2

REPORT INFORMATION
  Report Type: Spontaneous
  Country: ES (occurrence: ES)
  Receive Date: 20170407
  Receipt Date: 20170407
  Transmission Date: 20170830
  Serious: Yes (Other)
  Sender: FDA-Public Use
  Company Number: ES-CONCORDIA PHARMACEUTICALS INC.-E2B_00008085

PATIENT
  Age: 62 Year
  Sex: Female

DRUGS (16)
  1. ZONEGRAN [Interacting]
     Active Substance: ZONISAMIDE
     Dosage: AT NIGHT
     Route: 048
  2. IBUPROFEN. [Concomitant]
     Active Substance: IBUPROFEN
     Indication: PRODUCT USED FOR UNKNOWN INDICATION
     Route: 048
  3. OLMESARTAN MEDOXOMIL. [Interacting]
     Active Substance: OLMESARTAN MEDOXOMIL
     Indication: HYPERTENSION
     Dosage: UNKNOWN
     Route: 048
  4. EUTIROX COMPRIMIDOS [Concomitant]
     Indication: THYROID DISORDER
     Dosage: UNKNOWN DOSE
     Route: 048
  5. ALENDRONATE [Concomitant]
     Active Substance: ALENDRONATE SODIUM
     Indication: PRODUCT USED FOR UNKNOWN INDICATION
     Dosage: UNKNOWN
     Route: 048
  6. ZONEGRAN [Suspect]
     Active Substance: ZONISAMIDE
     Indication: BRAIN LOBECTOMY
     Route: 048
  7. ESCITALOPRAM [Concomitant]
     Active Substance: ESCITALOPRAM OXALATE
     Indication: PRODUCT USED FOR UNKNOWN INDICATION
     Dosage: UNKNOWN DOSE
     Route: 048
  8. BROMAZEPAM [Concomitant]
     Active Substance: BROMAZEPAM
     Indication: BRAIN LOBECTOMY
     Dosage: UNKNOWN
     Route: 048
  9. ZIVEREL [Concomitant]
     Indication: PRODUCT USED FOR UNKNOWN INDICATION
     Dosage: UNKNOWN
     Route: 048
  10. RELVAR ELLIPTA [Interacting]
     Active Substance: FLUTICASONE FUROATE\VILANTEROL TRIFENATATE
     Indication: ASTHMA
     Dosage: 184 MCG/22 MCG (STRENGTH), DAILY DOSE UNKNOWN
     Route: 055
     Dates: start: 2011, end: 201702
  11. OMEPRAZOL [Interacting]
     Active Substance: OMEPRAZOLE
     Indication: HIATUS HERNIA
     Dosage: UNKNOWN
     Route: 048
  12. METAMIZOL [Concomitant]
     Active Substance: METAMIZOLE SODIUM
     Indication: PRODUCT USED FOR UNKNOWN INDICATION
     Dosage: DOSE UNKNOWN AS NEEDED
     Route: 065
  13. CARTICURE [Concomitant]
     Indication: PRODUCT USED FOR UNKNOWN INDICATION
     Dosage: UNKNOWN
     Route: 048
  14. SIMVASTATINA [Interacting]
     Active Substance: SIMVASTATIN
     Indication: PRODUCT USED FOR UNKNOWN INDICATION
     Dosage: UNKNOWN
     Route: 048
  15. PLURALAIS [Interacting]
     Active Substance: MONTELUKAST SODIUM
     Indication: ASTHMA
     Dosage: DAILY DOSE UNKNOWN
     Route: 048
  16. ZALDIAR [Concomitant]
     Active Substance: ACETAMINOPHEN\TRAMADOL HYDROCHLORIDE
     Indication: PRODUCT USED FOR UNKNOWN INDICATION
     Dosage: UNKNOWN
     Route: 048

REACTIONS (6)
  - Pain [Recovering/Resolving]
  - Fibromyalgia [Unknown]
  - Drug interaction [Not Recovered/Not Resolved]
  - Spinal fracture [Recovered/Resolved]
  - Dental caries [Recovered/Resolved]
  - Dysphonia [Not Recovered/Not Resolved]

NARRATIVE: CASE EVENT DATE: 2016
